FAERS Safety Report 15239404 (Version 2)
Quarter: 2018Q3

REPORT INFORMATION
  Report Type: Spontaneous
  Country: ES (occurrence: ES)
  Receive Date: 20180803
  Receipt Date: 20180905
  Transmission Date: 20181010
  Serious: Yes (Other)
  Sender: FDA-Public Use
  Company Number: PHHY2018ES062530

PATIENT
  Age: 4 Year
  Sex: Male

DRUGS (2)
  1. IBUPROFEN. [Suspect]
     Active Substance: IBUPROFEN
     Indication: RESPIRATORY TRACT INFECTION
     Route: 065
  2. ASA [Suspect]
     Active Substance: ASPIRIN
     Indication: DRUG PROVOCATION TEST
     Dosage: 25 MG, UNK
     Route: 048

REACTIONS (6)
  - Drug hypersensitivity [Unknown]
  - Angioedema [Unknown]
  - Product use in unapproved indication [Unknown]
  - Urticaria [Unknown]
  - Therapeutic product cross-reactivity [Unknown]
  - Eyelid disorder [Unknown]
